FAERS Safety Report 19693717 (Version 2)
Quarter: 2021Q3

REPORT INFORMATION
  Report Type: Spontaneous
  Country: ES (occurrence: ES)
  Receive Date: 20210813
  Receipt Date: 20210922
  Transmission Date: 20211014
  Serious: Yes (Other)
  Sender: FDA-Public Use
  Company Number: ES-LUPIN PHARMACEUTICALS INC.-2021-14454

PATIENT
  Age: 65 Year
  Sex: Female

DRUGS (4)
  1. PERAMPANEL [Interacting]
     Active Substance: PERAMPANEL
     Indication: ORTHOSTATIC TREMOR
     Dosage: 2 MILLIGRAM, QD
     Route: 065
  2. GABAPENTIN. [Suspect]
     Active Substance: GABAPENTIN
     Indication: ORTHOSTATIC TREMOR
     Dosage: UNK
     Route: 065
  3. PERAMPANEL [Interacting]
     Active Substance: PERAMPANEL
     Dosage: 4 MILLIGRAM, QD
     Route: 065
  4. PERAMPANEL [Interacting]
     Active Substance: PERAMPANEL
     Dosage: 2 MILLIGRAM, QD
     Route: 065

REACTIONS (4)
  - Drug interaction [Unknown]
  - Gait disturbance [Unknown]
  - Drug tolerance decreased [Unknown]
  - Weight increased [Unknown]
